FAERS Safety Report 14790649 (Version 3)
Quarter: 2018Q2

REPORT INFORMATION
  Report Type: Spontaneous
  Country: DE (occurrence: DE)
  Receive Date: 20180423
  Receipt Date: 20180620
  Transmission Date: 20180711
  Serious: Yes (Death, Hospitalization, Other)
  Sender: FDA-Public Use
  Company Number: DE-MYLANLABS-2018M1025389

PATIENT
  Age: 15 Month
  Sex: Female
  Weight: 9.6 kg

DRUGS (7)
  1. EXODUS                             /01588502/ [Suspect]
     Active Substance: ESCITALOPRAM OXALATE
     Indication: PRODUCT USED FOR UNKNOWN INDICATION
     Dosage: UNK
  2. VARIVAX                            /01329701/ [Suspect]
     Active Substance: HORSE CHESTNUT
     Indication: PROPHYLAXIS
     Dosage: 1 DF
     Route: 030
  3. SILDENAFIL. [Suspect]
     Active Substance: SILDENAFIL
     Indication: PRODUCT USED FOR UNKNOWN INDICATION
     Dosage: UNK
  4. PHENOBARBITAL. [Suspect]
     Active Substance: PHENOBARBITAL
     Indication: PRODUCT USED FOR UNKNOWN INDICATION
  5. SPIRONOLACTONE. [Suspect]
     Active Substance: SPIRONOLACTONE
     Indication: PRODUCT USED FOR UNKNOWN INDICATION
     Dosage: UNK
  6. TOPIRAMATE. [Suspect]
     Active Substance: TOPIRAMATE
     Indication: PRODUCT USED FOR UNKNOWN INDICATION
     Dosage: UNK
     Route: 065
  7. SYNAGIS [Suspect]
     Active Substance: PALIVIZUMAB
     Indication: PRODUCT USED FOR UNKNOWN INDICATION
     Dosage: 150MG
     Route: 030

REACTIONS (7)
  - Pneumonia [Fatal]
  - Oxygen saturation decreased [Unknown]
  - Pain [Unknown]
  - Flatulence [Unknown]
  - Respiratory failure [Fatal]
  - Immobile [Unknown]
  - Dry skin [Unknown]

NARRATIVE: CASE EVENT DATE: 20170201
